FAERS Safety Report 24241046 (Version 2)
Quarter: 2024Q4

REPORT INFORMATION
  Report Type: Other
  Country: AU (occurrence: AU)
  Receive Date: 20240823
  Receipt Date: 20241128
  Transmission Date: 20250114
  Serious: No
  Sender: TOLMAR
  Company Number: AU-TOLMAR, INC.-24AU051564

PATIENT
  Sex: Male

DRUGS (2)
  1. ELIGARD [Suspect]
     Active Substance: LEUPROLIDE ACETATE
     Indication: Prostate cancer
     Dosage: 22.5 MILLIGRAM, Q 3 MONTH
     Dates: start: 20201029
  2. ELIGARD [Suspect]
     Active Substance: LEUPROLIDE ACETATE
     Indication: Prostate cancer
     Dosage: UNK

REACTIONS (1)
  - Prostatic specific antigen increased [Not Recovered/Not Resolved]
